FAERS Safety Report 8594463-8 (Version None)
Quarter: 2012Q3

REPORT INFORMATION
  Report Type: 
  Country: None (occurrence: None)
  Receive Date: 20120815
  Receipt Date: 20120810
  Transmission Date: 20120928
  Serious: No
  Sender: FDA-Public Use
  Company Number: US-009507513-2012SP035928

PATIENT

DRUGS (5)
  1. CLONAZEPAM [Concomitant]
     Indication: PRODUCT USED FOR UNKNOWN INDICATION
  2. IMPLANON [Suspect]
     Indication: CONTRACEPTION
     Dates: start: 20100201, end: 20101001
  3. IMPLANON [Suspect]
     Dates: start: 20110901
  4. LAMICTAL [Concomitant]
     Indication: PRODUCT USED FOR UNKNOWN INDICATION
  5. ZOLOFT [Concomitant]
     Indication: PRODUCT USED FOR UNKNOWN INDICATION

REACTIONS (2)
  - WEIGHT INCREASED [None]
  - INFERTILITY FEMALE [None]
